FAERS Safety Report 20564798 (Version 2)
Quarter: 2022Q1

REPORT INFORMATION
  Report Type: Spontaneous
  Country: US (occurrence: US)
  Receive Date: 20220308
  Receipt Date: 20220308
  Transmission Date: 20220423
  Serious: No
  Sender: FDA-Public Use
  Company Number: US-ALLERGAN-2112104US

PATIENT
  Sex: Female

DRUGS (3)
  1. ESTRACE [Suspect]
     Active Substance: ESTRADIOL
     Indication: Hormone replacement therapy
     Route: 067
  2. ESTRACE [Suspect]
     Active Substance: ESTRADIOL
     Indication: Hormone replacement therapy
  3. ESTRACE [Suspect]
     Active Substance: ESTRADIOL

REACTIONS (3)
  - Night sweats [Unknown]
  - Headache [Unknown]
  - Drug ineffective [Unknown]
